FAERS Safety Report 10263291 (Version 2)
Quarter: 2014Q2

REPORT INFORMATION
  Report Type: Report from Study
  Country: US (occurrence: US)
  Receive Date: 20140626
  Receipt Date: 20140626
  Transmission Date: 20141212
  Serious: Yes (Other)
  Sender: FDA-Public Use
  Company Number: US-MYLANLABS-2012S1015173

PATIENT
  Age: 39 Year
  Sex: Male

DRUGS (5)
  1. CLOZAPINE TABLETS [Suspect]
     Route: 048
     Dates: end: 2012
  2. RISPERDAL [Concomitant]
  3. COGENTIN [Concomitant]
  4. LEXAPRO /01588501/ [Concomitant]
  5. LITHIUM [Concomitant]

REACTIONS (1)
  - Leukopenia [Recovered/Resolved]
